FAERS Safety Report 6768443-9 (Version None)
Quarter: 2010Q2

REPORT INFORMATION
  Report Type: 
  Country: None (occurrence: None)
  Receive Date: 20100614
  Receipt Date: 20100607
  Transmission Date: 20101027
  Serious: Yes (Life-Threatening, Hospitalization)
  Sender: FDA-Public Use
  Company Number: FR-BAYER-201018801GPV

PATIENT
  Age: 48 Year
  Sex: Male

DRUGS (7)
  1. CIFLOX [Suspect]
     Indication: PLEURAL DISORDER
     Dates: start: 20091225, end: 20100206
  2. AUGMENTIN '125' [Suspect]
     Indication: PLEURAL DISORDER
     Dates: start: 20091225, end: 20091230
  3. AMIKACIN [Suspect]
     Dates: start: 20091225, end: 20091230
  4. FORTUM [Suspect]
     Dates: start: 20091230, end: 20100119
  5. VANCOMYCIN HCL [Suspect]
     Dates: start: 20091230, end: 20100206
  6. FLAGYL [Suspect]
     Dates: start: 20091230, end: 20100119
  7. TAZOCILLINE [Suspect]
     Dates: start: 20100119, end: 20100206

REACTIONS (11)
  - ATROPHIC GLOSSITIS [None]
  - CHEILITIS [None]
  - DERMATITIS EXFOLIATIVE [None]
  - DRUG RASH WITH EOSINOPHILIA AND SYSTEMIC SYMPTOMS [None]
  - FACE OEDEMA [None]
  - HYPERTHERMIA [None]
  - INFLAMMATION [None]
  - LYMPHADENOPATHY [None]
  - OEDEMA PERIPHERAL [None]
  - RASH MACULO-PAPULAR [None]
  - SKIN EXFOLIATION [None]
